FAERS Safety Report 23843100 (Version 1)
Quarter: 2024Q2

REPORT INFORMATION
  Report Type: Spontaneous
  Country: US (occurrence: None)
  Receive Date: 20240509
  Receipt Date: 20240509
  Transmission Date: 20240715
  Serious: Yes (Other)
  Sender: FDA-Public Use
  Company Number: None

PATIENT
  Age: 54 Year
  Sex: Male
  Weight: 91.2 kg

DRUGS (1)
  1. YESCARTA [Suspect]
     Active Substance: AXICABTAGENE CILOLEUCEL
     Indication: Follicular lymphoma
     Dosage: FREQUENCY : ONCE;?
     Route: 042
     Dates: start: 20230124, end: 20230124

REACTIONS (4)
  - Lymphadenopathy [None]
  - Stem cell transplant [None]
  - Follicular lymphoma recurrent [None]
  - Cytokine release syndrome [None]

NARRATIVE: CASE EVENT DATE: 20240322
